FAERS Safety Report 7624211-7 (Version None)
Quarter: 2011Q3

REPORT INFORMATION
  Report Type: 
  Country: None (occurrence: None)
  Receive Date: 20110720
  Receipt Date: 20110720
  Transmission Date: 20111222
  Serious: No
  Sender: FDA-Public Use
  Company Number: None

PATIENT
  Age: 63 Year
  Sex: Male
  Weight: 77.564 kg

DRUGS (1)
  1. TAMSULOSIN HYDROCHLORIDE [Suspect]
     Indication: BENIGN PROSTATIC HYPERPLASIA
     Dosage: 0.4MG
     Route: 048
     Dates: start: 20110402, end: 20110719

REACTIONS (6)
  - LOSS OF LIBIDO [None]
  - DISEASE RECURRENCE [None]
  - PRODUCT QUALITY ISSUE [None]
  - GENERAL PHYSICAL HEALTH DETERIORATION [None]
  - NOCTURIA [None]
  - LETHARGY [None]
